FAERS Safety Report 5695454-7 (Version None)
Quarter: 2008Q2

REPORT INFORMATION
  Report Type: 
  Country: None (occurrence: None)
  Receive Date: 20080403
  Receipt Date: 20080321
  Transmission Date: 20081010
  Serious: No
  Sender: FDA-Public Use
  Company Number: 2007US001253

PATIENT
  Age: 76 Year
  Sex: Male

DRUGS (11)
  1. AMEVIVE [Suspect]
     Indication: PSORIASIS
     Dosage: 15 MG, WEEKLY, INTRAMUSCULAR
     Route: 030
     Dates: start: 20031020
  2. LACTULOSE [Concomitant]
  3. GLIPIZIDE [Concomitant]
  4. FUROSEMIDE [Concomitant]
  5. IMIPRAMINE [Concomitant]
  6. POTASSIUM CHLORIDE [Concomitant]
  7. HUMALOG [Concomitant]
  8. NOVOLIN (INSULIN) [Concomitant]
  9. OMEPRAZOLE [Concomitant]
  10. NADOLOL [Concomitant]
  11. INSPRA [Concomitant]

REACTIONS (1)
  - LIVER DISORDER [None]
